FAERS Safety Report 18680201 (Version 4)
Quarter: 2021Q1

REPORT INFORMATION
  Report Type: Report from Study
  Country: None (occurrence: US)
  Receive Date: 20201230
  Receipt Date: 20210218
  Transmission Date: 20210419
  Serious: Yes (Hospitalization, Other)
  Sender: FDA-Public Use
  Company Number: US-ABBVIE-20K-163-3635736-00

PATIENT
  Age: 78 Year
  Sex: Female
  Weight: 62.65 kg

DRUGS (3)
  1. RINVOQ [Suspect]
     Active Substance: UPADACITINIB
     Route: 048
  2. RINVOQ [Suspect]
     Active Substance: UPADACITINIB
     Indication: RHEUMATOID ARTHRITIS
     Route: 048
  3. ELIQUIS [Concomitant]
     Active Substance: APIXABAN
     Indication: ANTICOAGULANT THERAPY

REACTIONS (4)
  - Sciatica [Not Recovered/Not Resolved]
  - Fall [Recovered/Resolved]
  - Arthropathy [Unknown]
  - Pain [Unknown]

NARRATIVE: CASE EVENT DATE: 202010
